FAERS Safety Report 14155586 (Version 1)
Quarter: 2017Q4

REPORT INFORMATION
  Report Type: Spontaneous
  Country: US (occurrence: US)
  Receive Date: 20171103
  Receipt Date: 20171103
  Transmission Date: 20180321
  Serious: No
  Sender: FDA-Public Use
  Company Number: US-ACCORD-045764

PATIENT
  Age: 93 Year
  Sex: Male
  Weight: 79.38 kg

DRUGS (1)
  1. HYDROCHLOROTHIAZIDE ACCORD [Suspect]
     Active Substance: HYDROCHLOROTHIAZIDE
     Indication: PRODUCT USED FOR UNKNOWN INDICATION
     Dosage: STRENGTH: 12.5 MG?THE PATIENT BEGAN THERAPY WITH THE?ACCORD BRAND PRODUCT APPROXIMATELY 3 DAYS AGO
     Route: 048

REACTIONS (2)
  - Peripheral swelling [Unknown]
  - Product substitution issue [Unknown]
